FAERS Safety Report 9496783 (Version 2)
Quarter: 2013Q3

REPORT INFORMATION
  Report Type: Spontaneous
  Country: DE (occurrence: DE)
  Receive Date: 20130904
  Receipt Date: 20130919
  Transmission Date: 20140515
  Serious: Yes (Death, Other)
  Sender: FDA-Public Use
  Company Number: DE-PFIZER INC-2013253372

PATIENT
  Sex: Male

DRUGS (1)
  1. MORPHINE SULFATE [Suspect]
     Dosage: 2500 MG, 1X/DAY

REACTIONS (6)
  - Overdose [Fatal]
  - Death [Fatal]
  - Anxiety [Unknown]
  - Hallucination, visual [Unknown]
  - Hallucination, tactile [Unknown]
  - Feeling cold [Unknown]
